FAERS Safety Report 20988398 (Version 1)
Quarter: 2022Q2

REPORT INFORMATION
  Report Type: Spontaneous
  Country: CN (occurrence: CN)
  Receive Date: 20220621
  Receipt Date: 20220621
  Transmission Date: 20220721
  Serious: Yes (Other)
  Sender: FDA-Public Use
  Company Number: None

PATIENT
  Age: 46 Year
  Sex: Female
  Weight: 55 kg

DRUGS (6)
  1. MANNITOL [Suspect]
     Active Substance: MANNITOL
     Indication: Dehydration
     Dosage: 100 ML, BID
     Route: 041
     Dates: start: 20220611, end: 20220611
  2. SODIUM CHLORIDE [Suspect]
     Active Substance: SODIUM CHLORIDE
     Indication: Medication dilution
     Dosage: 250 ML, QD + INJECTION LORNOXICAM 16MG
     Route: 041
     Dates: start: 20220611, end: 20220611
  3. SODIUM CHLORIDE [Suspect]
     Active Substance: SODIUM CHLORIDE
     Dosage: 250 ML, QD + VITAMIN C INJECTION 2 GRAM
     Route: 041
     Dates: start: 20220611, end: 20220611
  4. LEVOFLOXACIN [Suspect]
     Active Substance: LEVOFLOXACIN
     Indication: Bacterial infection
     Dosage: 100 ML, QD
     Route: 041
     Dates: start: 20220611, end: 20220611
  5. LORNOXICAM [Suspect]
     Active Substance: LORNOXICAM
     Indication: Analgesic therapy
     Dosage: 16 MG, QD
     Route: 041
     Dates: start: 20220611, end: 20220611
  6. VITAMIN C [Suspect]
     Active Substance: ASCORBIC ACID
     Indication: Unevaluable therapy
     Dosage: 2 G, QD
     Route: 041
     Dates: start: 20220611, end: 20220611

REACTIONS (2)
  - Rash [Recovering/Resolving]
  - Pruritus [Recovering/Resolving]

NARRATIVE: CASE EVENT DATE: 20220611
